FAERS Safety Report 19409093 (Version 1)
Quarter: 2021Q2

REPORT INFORMATION
  Report Type: Report from Study
  Country: PA (occurrence: PA)
  Receive Date: 20210613
  Receipt Date: 20210613
  Transmission Date: 20210717
  Serious: Yes (Other)
  Sender: FDA-Public Use
  Company Number: NVSC2021PA127431

PATIENT
  Sex: Female
  Weight: 81.63 kg

DRUGS (2)
  1. KISQALI [Suspect]
     Active Substance: RIBOCICLIB
     Indication: BREAST CANCER
     Dosage: 600 MG, QD
     Route: 048
     Dates: start: 20210101
  2. PERINDOPRIL [Concomitant]
     Active Substance: PERINDOPRIL
     Indication: PRODUCT USED FOR UNKNOWN INDICATION
     Dosage: 10 MG
     Route: 065

REACTIONS (8)
  - Hairy cell leukaemia [Recovering/Resolving]
  - Second primary malignancy [Recovering/Resolving]
  - Skin atrophy [Recovering/Resolving]
  - Cough [Recovering/Resolving]
  - Hypertension [Recovering/Resolving]
  - Flatulence [Recovering/Resolving]
  - Paraesthesia [Recovering/Resolving]
  - Dyspepsia [Recovering/Resolving]
